FAERS Safety Report 5024005-5 (Version None)
Quarter: 2006Q2

REPORT INFORMATION
  Report Type: 
  Country: None (occurrence: None)
  Receive Date: 20060607
  Receipt Date: 20060524
  Transmission Date: 20061013
  Serious: Yes (Death, Hospitalization)
  Sender: FDA-Public Use
  Company Number: 2006-01272

PATIENT
  Age: 70 Year
  Sex: Female
  Weight: 48 kg

DRUGS (2)
  1. VELCADE [Suspect]
     Indication: MULTIPLE MYELOMA
     Dosage: 1.00 MG, INTRAVENOUS
     Route: 042
     Dates: start: 20060320, end: 20060410
  2. PXD101 (PXD101) [Suspect]
     Indication: MULTIPLE MYELOMA
     Dosage: 435.00 MG
     Dates: start: 20060320, end: 20060412

REACTIONS (4)
  - HAEMORRHAGE [None]
  - LOSS OF CONSCIOUSNESS [None]
  - SEPSIS [None]
  - THROMBOCYTOPENIA [None]
